FAERS Safety Report 19900008 (Version 2)
Quarter: 2021Q4

REPORT INFORMATION
  Report Type: Report from Study
  Country: CA (occurrence: CA)
  Receive Date: 20210930
  Receipt Date: 20211006
  Transmission Date: 20220303
  Serious: Yes (Hospitalization)
  Sender: FDA-Public Use
  Company Number: CA-GLAXOSMITHKLINE-CA2021AMR172963

PATIENT
  Age: 52 Year
  Sex: Male

DRUGS (4)
  1. MEPOLIZUMAB [Suspect]
     Active Substance: MEPOLIZUMAB
     Indication: Asthma
     Dosage: 100 MG, Z EVERY 4 WEEKS
     Route: 058
     Dates: start: 20200108
  2. MEPOLIZUMAB [Suspect]
     Active Substance: MEPOLIZUMAB
     Indication: Asthma
     Dosage: 100 MG, Z EVERY 4 WEEKS
     Route: 058
     Dates: start: 20200108
  3. VENTOLIN [Suspect]
     Active Substance: ALBUTEROL SULFATE
     Indication: Dyspnoea
     Dosage: 2 PUFF(S), Z, EVERY 2 HOURS
     Dates: start: 20210815
  4. VENTOLIN [Suspect]
     Active Substance: ALBUTEROL SULFATE
     Dosage: 1 PUFF(S), Z

REACTIONS (16)
  - Asthma [Unknown]
  - Dyspnoea [Not Recovered/Not Resolved]
  - Dyspnoea exertional [Unknown]
  - Wheezing [Unknown]
  - Pallor [Unknown]
  - Dry skin prophylaxis [Unknown]
  - Hyperhidrosis [Unknown]
  - Chest pain [Unknown]
  - Breath sounds abnormal [Unknown]
  - Cough [Unknown]
  - Blood pressure increased [Unknown]
  - Heart rate increased [Unknown]
  - Polyuria [Unknown]
  - Decreased appetite [Unknown]
  - Product dose omission issue [Unknown]
  - Inappropriate schedule of product administration [Unknown]

NARRATIVE: CASE EVENT DATE: 20210801
